FAERS Safety Report 9243339 (Version 2)
Quarter: 2013Q2

REPORT INFORMATION
  Report Type: Spontaneous
  Country: US (occurrence: US)
  Receive Date: 20130420
  Receipt Date: 20130513
  Transmission Date: 20140414
  Serious: Yes (Hospitalization)
  Sender: FDA-Public Use
  Company Number: US-B.I. PHARMACEUTICALS,INC./RIDGEFIELD-2013-BI-10197BP

PATIENT
  Age: 75 Year
  Sex: Male
  Weight: 73.93 kg

DRUGS (2)
  1. PRADAXA [Suspect]
     Indication: ATRIAL FIBRILLATION
     Dosage: 300 MG
     Route: 048
     Dates: start: 20110420
  2. LIPITOR [Suspect]

REACTIONS (7)
  - Penile haemorrhage [Recovered/Resolved]
  - Haemorrhage [Recovered/Resolved]
  - Penile haemorrhage [Recovered/Resolved]
  - Abnormal loss of weight [Recovered/Resolved]
  - Bladder disorder [Recovered/Resolved]
  - Cystitis [Recovered/Resolved]
  - Blood urine present [Recovered/Resolved]
